FAERS Safety Report 8351154-6 (Version None)
Quarter: 2012Q2

REPORT INFORMATION
  Report Type: 
  Country: None (occurrence: None)
  Receive Date: 20120510
  Receipt Date: 20120501
  Transmission Date: 20120825
  Serious: Yes (Other)
  Sender: FDA-Public Use
  Company Number: JP-JNJFOC-20120506311

PATIENT

DRUGS (4)
  1. MIRABEGRON [Interacting]
     Indication: MICTURITION URGENCY
     Route: 048
  2. TRAMADOL HYDROCHLORIDE AND ACETAMINOPHEN [Suspect]
     Indication: PRODUCT USED FOR UNKNOWN INDICATION
     Dosage: TWICE A DAY ABOUT 3 WEEKS
     Route: 048
  3. UNKNOWN MEDICATION [Concomitant]
     Route: 065
  4. MIRABEGRON [Interacting]
     Indication: POLLAKIURIA
     Route: 048

REACTIONS (3)
  - MICTURITION URGENCY [None]
  - DRUG INTERACTION [None]
  - POLLAKIURIA [None]
